FAERS Safety Report 8004984-4 (Version None)
Quarter: 2011Q4

REPORT INFORMATION
  Report Type: 
  Country: None (occurrence: None)
  Receive Date: 20111223
  Receipt Date: 20111215
  Transmission Date: 20120403
  Serious: Yes (Other)
  Sender: FDA-Public Use
  Company Number: JP-NAPPMUNDI-MAG-2011-0001981

PATIENT
  Sex: Female

DRUGS (10)
  1. METHYCOOL [Concomitant]
     Dosage: UNK
     Route: 048
     Dates: end: 20111025
  2. GOSHAJINKIGAN [Concomitant]
     Dosage: UNK
     Route: 048
     Dates: end: 20111025
  3. OXYCODONE HCL [Suspect]
     Indication: CANCER PAIN
     Dosage: 50 MG, DAILY
     Route: 048
     Dates: start: 20111014, end: 20111026
  4. OXYCODONE HCL [Suspect]
     Indication: CANCER PAIN
     Dosage: 7.5 MG, DAILY
     Route: 048
     Dates: start: 20111014, end: 20111026
  5. FAMOTIDINE [Suspect]
     Indication: PRODUCT USED FOR UNKNOWN INDICATION
     Dosage: UNK
     Route: 048
     Dates: end: 20111019
  6. GOODMIN [Suspect]
     Indication: PRODUCT USED FOR UNKNOWN INDICATION
     Dosage: UNK
     Route: 048
     Dates: start: 20111021, end: 20111021
  7. UZEL [Concomitant]
     Indication: COLON CANCER
     Dosage: UNK
     Route: 048
     Dates: end: 20111018
  8. HALCION [Suspect]
     Indication: PRODUCT USED FOR UNKNOWN INDICATION
     Dosage: UNK
     Route: 048
     Dates: start: 20111021, end: 20111021
  9. CANDESARTAN CILEXETIL [Concomitant]
     Route: 048
  10. UFT [Concomitant]
     Indication: COLON CANCER
     Dosage: UNK
     Route: 048
     Dates: end: 20111018

REACTIONS (1)
  - DELIRIUM [None]
